FAERS Safety Report 17728010 (Version 1)
Quarter: 2020Q2

REPORT INFORMATION
  Report Type: Spontaneous
  Country: US (occurrence: US)
  Receive Date: 20200429
  Receipt Date: 20200429
  Transmission Date: 20200714
  Serious: Yes (Other)
  Sender: FDA-Public Use
  Company Number: None

PATIENT
  Age: 37 Year
  Sex: Female
  Weight: 103.05 kg

DRUGS (7)
  1. DULOXETINE ER [Concomitant]
  2. FLONASE [Concomitant]
     Active Substance: FLUTICASONE PROPIONATE
  3. LEVOFLOXACIN 750 MG [Suspect]
     Active Substance: LEVOFLOXACIN
     Indication: EAR INFECTION
     Dosage: ?          QUANTITY:5 TABLET(S);?
     Route: 048
     Dates: start: 20200420, end: 20200425
  4. VISTARIL [Concomitant]
     Active Substance: HYDROXYZINE PAMOATE
  5. ACYCLOVIR. [Concomitant]
     Active Substance: ACYCLOVIR
  6. IBUPROFEN. [Concomitant]
     Active Substance: IBUPROFEN
  7. MELATONIN [Concomitant]
     Active Substance: MELATONIN

REACTIONS (4)
  - Oedema [None]
  - Peripheral swelling [None]
  - Tendonitis [None]
  - Contusion [None]

NARRATIVE: CASE EVENT DATE: 20200425
